FAERS Safety Report 7992910-3 (Version None)
Quarter: 2011Q4

REPORT INFORMATION
  Report Type: 
  Country: None (occurrence: None)
  Receive Date: 20111219
  Receipt Date: 20110926
  Transmission Date: 20120403
  Serious: No
  Sender: FDA-Public Use
  Company Number: US-ASTRAZENECA-2011SE57767

PATIENT
  Age: 72 Year
  Sex: Male
  Weight: 77.1 kg

DRUGS (3)
  1. NEXIUM [Concomitant]
  2. PLAVIX [Concomitant]
     Indication: CEREBROVASCULAR ACCIDENT PROPHYLAXIS
  3. CRESTOR [Suspect]
     Route: 048

REACTIONS (5)
  - MUSCULOSKELETAL DISCOMFORT [None]
  - CIRCUMSTANCE OR INFORMATION CAPABLE OF LEADING TO MEDICATION ERROR [None]
  - BACK PAIN [None]
  - EXOSTOSIS [None]
  - LIMB DISCOMFORT [None]
